FAERS Safety Report 7410606-3 (Version None)
Quarter: 2011Q2

REPORT INFORMATION
  Report Type: 
  Country: None (occurrence: None)
  Receive Date: 20110413
  Receipt Date: 20110405
  Transmission Date: 20111010
  Serious: No
  Sender: FDA-Public Use
  Company Number: US-BIOGENIDEC-2011BI012930

PATIENT
  Sex: Female

DRUGS (2)
  1. AVONEX [Suspect]
     Indication: MULTIPLE SCLEROSIS
     Route: 030
     Dates: start: 20090602
  2. AVONEX [Suspect]
     Route: 030
     Dates: start: 20051026, end: 20090306

REACTIONS (2)
  - AGRAPHIA [None]
  - DYSSTASIA [None]
